FAERS Safety Report 10164359 (Version 1)
Quarter: 2014Q2

REPORT INFORMATION
  Report Type: Spontaneous
  Country: US (occurrence: US)
  Receive Date: 20140510
  Receipt Date: 20140510
  Transmission Date: 20141212
  Serious: No
  Sender: FDA-Public Use
  Company Number: US-BRISTOL-MYERS SQUIBB COMPANY-19493881

PATIENT
  Age: 67 Year
  Sex: Male
  Weight: 86.17 kg

DRUGS (4)
  1. BYDUREON  2MG SUSPENSION [Suspect]
     Indication: TYPE 2 DIABETES MELLITUS
     Route: 058
     Dates: start: 201306
  2. LEVEMIR [Concomitant]
     Indication: TYPE 2 DIABETES MELLITUS
     Dosage: DOSE REDUCED FROM 150UNITS DAILY TO 60UNITS DAILY
  3. STARLIX [Concomitant]
     Indication: DIABETES MELLITUS
  4. METFORMIN [Concomitant]

REACTIONS (2)
  - Underdose [Unknown]
  - Product quality issue [Unknown]
